FAERS Safety Report 5119573-9 (Version None)
Quarter: 2006Q4

REPORT INFORMATION
  Report Type: 
  Country: None (occurrence: None)
  Receive Date: 20061003
  Receipt Date: 20060926
  Transmission Date: 20070319
  Serious: Yes (Other)
  Sender: FDA-Public Use
  Company Number: US-JNJFOC-20060906057

PATIENT
  Sex: Male
  Weight: 131.54 kg

DRUGS (10)
  1. DURAGESIC-100 [Suspect]
     Route: 062
  2. DURAGESIC-100 [Suspect]
     Indication: PAIN IN EXTREMITY
     Route: 062
  3. DURAGESIC-100 [Suspect]
     Indication: BACK PAIN
     Route: 062
  4. METHADONE HCL [Concomitant]
     Indication: PAIN
     Route: 065
  5. NEURONTIN [Concomitant]
     Indication: PAIN
     Dosage: 2-4 TIMES DAILY
     Route: 065
  6. KLONOPIN [Concomitant]
     Indication: PAIN
     Route: 065
  7. POTASSIUM [Concomitant]
     Route: 065
  8. CYMBALTA [Concomitant]
     Indication: DEPRESSION
     Route: 065
  9. ISOSORBIDE [Concomitant]
     Indication: BLOOD PRESSURE
     Route: 065
  10. GLIPIZIDE [Concomitant]
     Route: 065

REACTIONS (4)
  - APPLICATION SITE INFECTION [None]
  - DIABETES MELLITUS [None]
  - INCORRECT DRUG ADMINISTRATION DURATION [None]
  - MYOCARDIAL INFARCTION [None]
